FAERS Safety Report 12969208 (Version 1)
Quarter: 2016Q4

REPORT INFORMATION
  Report Type: Spontaneous
  Country: US (occurrence: US)
  Receive Date: 20161123
  Receipt Date: 20161123
  Transmission Date: 20170207
  Serious: Yes (Other)
  Sender: FDA-Public Use
  Company Number: US-SA-2016SA212450

PATIENT
  Sex: Male
  Weight: 18.1 kg

DRUGS (12)
  1. NORMAL SALINE [Concomitant]
     Active Substance: SODIUM CHLORIDE
     Route: 042
     Dates: start: 20160923
  2. L-M-X [Concomitant]
     Route: 061
     Dates: start: 20160923
  3. SPIRONOLACTONE. [Concomitant]
     Active Substance: SPIRONOLACTONE
     Dosage: 12.5 MLG
     Route: 048
     Dates: start: 20160630
  4. PEDIACARE FEVER [Concomitant]
     Route: 048
     Dates: start: 20160309
  5. SINGULAIR [Concomitant]
     Active Substance: MONTELUKAST SODIUM
     Route: 048
     Dates: start: 20141107
  6. DIPHENHYDRAMINE. [Concomitant]
     Active Substance: DIPHENHYDRAMINE
     Route: 048
     Dates: start: 20160923
  7. LANSOPRAZOLE. [Concomitant]
     Active Substance: LANSOPRAZOLE
     Route: 048
     Dates: start: 20160831
  8. ALBUTEROL SULFATE. [Concomitant]
     Active Substance: ALBUTEROL SULFATE
     Dosage: I VIAL NEB AS NEEDED
     Dates: start: 20150610
  9. CEREZYME [Suspect]
     Active Substance: IMIGLUCERASE
     Route: 042
     Dates: start: 20110428
  10. HEPARIN [Concomitant]
     Active Substance: HEPARIN SODIUM
     Dosage: 100 UN/ML IV FLUSH DOSE:100 INTERNATIONAL UNIT(S)/MILLILITRE
     Route: 042
     Dates: start: 20160923
  11. EPIPEN [Concomitant]
     Active Substance: EPINEPHRINE
     Route: 030
     Dates: start: 20160923
  12. QVAR [Concomitant]
     Active Substance: BECLOMETHASONE DIPROPIONATE
     Dosage: 80 MCG 2PUFFS INH TWICE DAILY
     Route: 055
     Dates: start: 20131122

REACTIONS (2)
  - Gastric ulcer [Unknown]
  - Abdominal pain upper [Unknown]
